FAERS Safety Report 16538548 (Version 1)
Quarter: 2019Q3

REPORT INFORMATION
  Report Type: Spontaneous
  Country: US (occurrence: US)
  Receive Date: 20190708
  Receipt Date: 20190708
  Transmission Date: 20191004
  Serious: No
  Sender: FDA-Public Use
  Company Number: US-AUROBINDO-AUR-APL-2019-017841

PATIENT

DRUGS (1)
  1. CLOPIDOGREL [Suspect]
     Active Substance: CLOPIDOGREL BISULFATE
     Indication: HAEMORRHAGE
     Dosage: 75 MILLIGRAM, ONCE A DAY
     Route: 048
     Dates: start: 20181204, end: 20190114

REACTIONS (1)
  - Contusion [Recovered/Resolved]
